FAERS Safety Report 7327351-5 (Version None)
Quarter: 2011Q1

REPORT INFORMATION
  Report Type: 
  Country: None (occurrence: None)
  Receive Date: 20110302
  Receipt Date: 20110222
  Transmission Date: 20110831
  Serious: Yes (Other)
  Sender: FDA-Public Use
  Company Number: US-GENENTECH-313653

PATIENT
  Sex: Female

DRUGS (12)
  1. ACIPHEX [Concomitant]
     Indication: GASTROOESOPHAGEAL REFLUX DISEASE
     Dosage: 1 TABLET, QD
  2. IRON [Concomitant]
     Indication: PRODUCT USED FOR UNKNOWN INDICATION
     Dosage: 65 MG, QD
  3. ALBUTEROL [Concomitant]
     Indication: LUNG DISORDER
     Dosage: UNK
  4. BENADRYL [Concomitant]
     Indication: PRODUCT USED FOR UNKNOWN INDICATION
  5. SINGULAIR [Concomitant]
     Indication: PRODUCT USED FOR UNKNOWN INDICATION
  6. XOLAIR [Suspect]
     Indication: ASTHMA
     Dosage: 300 MG, Q4W
     Route: 058
     Dates: start: 20090327
  7. COUMADIN [Concomitant]
     Indication: FACTOR V LEIDEN MUTATION
     Dosage: 5 MG, UNK
  8. SYNTHROID [Concomitant]
     Indication: PRODUCT USED FOR UNKNOWN INDICATION
     Dosage: 0.05 MG, UNK
  9. XYZAL [Concomitant]
     Indication: RHINITIS ALLERGIC
     Dosage: 5 MG, QPM
  10. CALCIUM CITRATE/CHOLECALCIFEROL [Concomitant]
     Indication: OSTEOPOROSIS
     Dosage: 2 TABLET, TID
  11. PRELIEF [Concomitant]
     Indication: PRODUCT USED FOR UNKNOWN INDICATION
     Dosage: 3 TABLET, PRN
  12. ACIDOPHILUS [Concomitant]
     Indication: PRODUCT USED FOR UNKNOWN INDICATION
     Dosage: UNK

REACTIONS (7)
  - BLOOD PRESSURE DECREASED [None]
  - DYSPNOEA [None]
  - MYALGIA [None]
  - INSOMNIA [None]
  - EYE PRURITUS [None]
  - ORAL PRURITUS [None]
  - PRURITUS GENERALISED [None]
